FAERS Safety Report 25903651 (Version 2)
Quarter: 2025Q4

REPORT INFORMATION
  Report Type: Spontaneous
  Country: US (occurrence: US)
  Receive Date: 20251010
  Receipt Date: 20251127
  Transmission Date: 20260118
  Serious: No
  Sender: SANOFI AVENTIS
  Company Number: US-SA-2025SA300118

PATIENT
  Sex: Female
  Weight: 81.82 kg

DRUGS (4)
  1. DUPIXENT [Suspect]
     Active Substance: DUPILUMAB
     Indication: Dermatitis atopic
     Dosage: 300 MG, QOW
     Route: 058
  2. MAGNESIUM ELEMENTAL [Concomitant]
     Dosage: UNK
  3. CALCIUM [Concomitant]
     Active Substance: CALCIUM
  4. Super Multiple [Concomitant]

REACTIONS (1)
  - Memory impairment [Not Recovered/Not Resolved]
